FAERS Safety Report 8309949-0 (Version None)
Quarter: 2012Q2

REPORT INFORMATION
  Report Type: 
  Country: None (occurrence: None)
  Receive Date: 20120425
  Receipt Date: 20120420
  Transmission Date: 20120825
  Serious: Yes (Hospitalization)
  Sender: FDA-Public Use
  Company Number: DE-PFIZER INC-DE-WYE-H03681608

PATIENT
  Age: 84 Year
  Sex: Male

DRUGS (65)
  1. AMPICILLIN AND SULBACTAM [Suspect]
     Dosage: 1500 MG, 1X/DAY
     Route: 042
     Dates: start: 20071206, end: 20071206
  2. ASPISOL [Concomitant]
     Dosage: UNK
     Route: 042
     Dates: start: 20071126, end: 20071126
  3. DOBUTAMINE [Concomitant]
     Dosage: UNK
     Route: 042
     Dates: start: 20071128, end: 20071128
  4. FENTANYL [Concomitant]
     Dosage: UNK
     Route: 042
     Dates: start: 20071128, end: 20071128
  5. FLUMAZENIL [Concomitant]
     Dosage: UNK
     Route: 042
     Dates: start: 20071203, end: 20071203
  6. BELOC [Concomitant]
     Dosage: UNK
     Route: 048
     Dates: start: 20071202, end: 20071202
  7. MIDAZOLAM [Concomitant]
     Dosage: UNK
     Route: 042
     Dates: start: 20071128, end: 20071128
  8. MORPHINE [Concomitant]
     Dosage: UNK
     Route: 042
     Dates: start: 20071126, end: 20071126
  9. KONAKION [Concomitant]
     Dosage: UNK
     Route: 042
     Dates: start: 20071203, end: 20071203
  10. PYRIDOXINE [Concomitant]
     Dosage: UNK
     Route: 048
     Dates: end: 20071126
  11. ASCORBIC ACID [Concomitant]
     Dosage: UNK
     Route: 048
     Dates: end: 20071126
  12. BIOTIN [Concomitant]
     Dosage: UNK
     Route: 048
     Dates: end: 20071126
  13. MARCUMAR [Concomitant]
     Dosage: UNK
     Route: 048
     Dates: start: 19730101, end: 20071126
  14. KONAKION [Concomitant]
     Dosage: UNK
     Route: 042
     Dates: start: 20071130, end: 20071130
  15. RED BLOOD CELLS, CONCENTRATED [Concomitant]
     Dosage: UNK
     Route: 042
     Dates: start: 20071127, end: 20071128
  16. AMPHOTERICIN B [Concomitant]
     Dosage: UNK
     Route: 048
     Dates: start: 20071202, end: 20071202
  17. DIGIMERCK [Concomitant]
     Dosage: UNK
     Route: 048
     Dates: end: 20071126
  18. NITROGLYCERIN [Concomitant]
     Dosage: UNK
     Route: 060
     Dates: start: 20071126, end: 20071126
  19. KONAKION [Concomitant]
     Dosage: UNK
     Route: 042
     Dates: start: 20071127, end: 20071128
  20. PROPOFOL [Concomitant]
     Dosage: UNK
     Route: 042
     Dates: start: 20071203, end: 20071209
  21. AMPICILLIN AND SULBACTAM [Suspect]
     Indication: PNEUMONIA
     Dosage: 1500 MG, 3X/DAY
     Route: 042
     Dates: start: 20071127, end: 20071205
  22. ALLOPURINOL [Concomitant]
     Dosage: UNK
     Route: 048
     Dates: end: 20071126
  23. AMPHOTERICIN B [Concomitant]
     Dosage: UNK
     Route: 048
     Dates: start: 20071203, end: 20071207
  24. ENALAPRIL MALEATE [Concomitant]
     Dosage: UNK
     Route: 048
     Dates: end: 20070701
  25. ENALAPRIL MALEATE [Concomitant]
     Dosage: UNK
     Route: 048
     Dates: start: 20070701, end: 20071126
  26. METOPROLOL TARTRATE [Concomitant]
     Dosage: UNK
     Route: 042
     Dates: start: 20071128, end: 20071128
  27. PLASMA PROTEIN FRACTION (HUMAN) [Concomitant]
     Dosage: UNK
     Route: 042
     Dates: start: 20071127, end: 20071127
  28. PROPOFOL [Concomitant]
     Dosage: UNK
     Route: 042
     Dates: start: 20071202, end: 20071202
  29. PANTOPRAZOLE [Suspect]
     Dosage: 40.0 MG, 2X/DAY
     Route: 042
     Dates: start: 20071127, end: 20071127
  30. CALCIUM [Concomitant]
     Dosage: UNK
     Route: 042
     Dates: start: 20071128, end: 20071130
  31. CYANOCOBALAMIN [Concomitant]
     Dosage: UNK
     Route: 048
     Dates: end: 20071126
  32. METOPROLOL TARTRATE [Concomitant]
     Dosage: UNK
     Route: 048
     Dates: start: 20071128, end: 20071201
  33. MIDAZOLAM [Concomitant]
     Dosage: UNK
     Route: 042
     Dates: start: 20071129, end: 20071129
  34. MIDAZOLAM [Concomitant]
     Dosage: UNK
     Route: 042
     Dates: start: 20071130, end: 20071130
  35. PROPOFOL [Concomitant]
     Dosage: UNK
     Route: 042
     Dates: start: 20071201, end: 20071201
  36. ZOLPIDEM TARTRATE [Concomitant]
     Dosage: UNK
     Route: 048
     Dates: start: 20061201, end: 20071125
  37. CALCIUM [Concomitant]
     Dosage: UNK
     Route: 042
     Dates: start: 20071201, end: 20071201
  38. DOBUTAMINE [Concomitant]
     Dosage: UNK
     Route: 042
     Dates: start: 20071127, end: 20071127
  39. BERIPLEX HS [Concomitant]
     Dosage: UNK
     Route: 042
     Dates: start: 20071127, end: 20071127
  40. FENTANYL [Concomitant]
     Dosage: UNK
     Route: 042
     Dates: start: 20071129, end: 20071130
  41. METOCLOPRAMIDE HYDROCHLORIDE [Concomitant]
     Dosage: UNK
     Route: 042
     Dates: start: 20071126, end: 20071126
  42. METOPROLOL SUCCINATE [Concomitant]
     Dosage: UNK
     Route: 048
     Dates: start: 20071207, end: 20071207
  43. BELOC [Concomitant]
     Dosage: UNK
     Route: 048
     Dates: start: 20071128, end: 20071201
  44. BELOC [Concomitant]
     Dosage: UNK
     Route: 042
     Dates: start: 20071128, end: 20071128
  45. METOPROLOL TARTRATE [Concomitant]
     Dosage: UNK
     Route: 048
     Dates: start: 20071202, end: 20071202
  46. RIBOFLAVIN [Concomitant]
     Dosage: UNK
     Route: 048
     Dates: end: 20071126
  47. FACTOR II/FACTOR IX CH/FACTOR VII/FACTOR X [Concomitant]
     Dosage: UNK
     Route: 042
     Dates: start: 20071127, end: 20071127
  48. FUROSEMID ^DAK^ [Concomitant]
     Dosage: UNK
     Route: 048
     Dates: end: 20071126
  49. HEPARIN [Concomitant]
     Dosage: UNK
     Route: 042
     Dates: start: 20071126, end: 20071126
  50. LACTOSE [Concomitant]
     Dosage: UNK
     Route: 048
     Dates: end: 20071126
  51. METOPROLOL SUCCINATE [Concomitant]
     Dosage: UNK
     Route: 048
     Dates: start: 20020101, end: 20071126
  52. DORMICUM TABLET ^ROCHE^ [Concomitant]
     Dosage: UNK
     Route: 042
     Dates: start: 20071127, end: 20071127
  53. NICOTINAMIDE [Concomitant]
     Dosage: UNK
     Route: 048
     Dates: end: 20071126
  54. THIAMINE [Concomitant]
     Dosage: UNK
     Route: 048
     Dates: end: 20071126
  55. PANTOPRAZOLE [Suspect]
     Dosage: 40.0 MG, 1X/DAY
     Route: 042
     Dates: start: 20071128, end: 20071203
  56. FENTANYL [Concomitant]
     Dosage: UNK
     Route: 042
     Dates: start: 20071201, end: 20071201
  57. FENTANYL [Concomitant]
     Dosage: UNK
     Route: 042
     Dates: start: 20071203, end: 20071203
  58. FENTANYL [Concomitant]
     Dosage: UNK
     Route: 042
     Dates: start: 20071127, end: 20071127
  59. FOLIC ACID [Concomitant]
     Dosage: UNK
     Route: 048
     Dates: end: 20071126
  60. METOPROLOL SUCCINATE [Concomitant]
     Dosage: UNK
     Route: 048
     Dates: start: 20071202, end: 20071206
  61. MIDAZOLAM [Concomitant]
     Dosage: UNK
     Route: 042
     Dates: start: 20071201, end: 20071201
  62. MIDAZOLAM [Concomitant]
     Dosage: UNK
     Route: 042
     Dates: start: 20071127, end: 20071127
  63. PANTOTHENIC ACID [Concomitant]
     Dosage: UNK
     Route: 048
     Dates: end: 20071126
  64. KONAKION [Concomitant]
     Dosage: UNK
     Route: 042
     Dates: start: 20071205, end: 20071205
  65. SUCROSE [Concomitant]
     Dosage: UNK
     Route: 048
     Dates: end: 20071126

REACTIONS (1)
  - HEPATITIS ACUTE [None]
